FAERS Safety Report 5159059-9 (Version None)
Quarter: 2006Q4

REPORT INFORMATION
  Report Type: 
  Country: None (occurrence: None)
  Receive Date: 20061128
  Receipt Date: 20061120
  Transmission Date: 20070319
  Serious: Yes (Death)
  Sender: FDA-Public Use
  Company Number: US-ROXANE LABORATORIES, INC-2006-DE-06141GD

PATIENT
  Age: 42 Year
  Sex: Female

DRUGS (13)
  1. ACETAMINOPHEN [Suspect]
  2. MORPHINE [Suspect]
  3. DOXYLAMINE [Suspect]
  4. CODEINE [Suspect]
  5. MEPROBAMATE [Suspect]
  6. CARISOPRODOL [Suspect]
  7. DIAZEPAM [Suspect]
  8. DOXEPIN HCL [Suspect]
  9. PROPOXYPHENE HYDROCHLORIDE [Suspect]
  10. DIPHENHYDRAMINE HCL [Suspect]
  11. NORCHLORCYCLIZINE [Suspect]
  12. CAFFEINE [Suspect]
  13. NICOTINE [Suspect]

REACTIONS (4)
  - COMPLETED SUICIDE [None]
  - DRUG ABUSER [None]
  - DRUG TOXICITY [None]
  - SUICIDE ATTEMPT [None]
